FAERS Safety Report 15364824 (Version 1)
Quarter: 2018Q3

REPORT INFORMATION
  Report Type: Spontaneous
  Country: FR (occurrence: FR)
  Receive Date: 20180910
  Receipt Date: 20180910
  Transmission Date: 20181010
  Serious: Yes (Hospitalization)
  Sender: FDA-Public Use
  Company Number: FR-CONCORDIA PHARMACEUTICALS INC.-E2B_00016575

PATIENT
  Age: 84 Year
  Sex: Female
  Weight: 49 kg

DRUGS (5)
  1. TEGRETOL [Concomitant]
     Active Substance: CARBAMAZEPINE
  2. DIGOXIN. [Suspect]
     Active Substance: DIGOXIN
     Indication: ATRIAL FIBRILLATION
     Route: 048
     Dates: start: 20111206, end: 20120319
  3. LASILIX [Suspect]
     Active Substance: FUROSEMIDE
     Indication: HYPERTENSION
     Route: 048
     Dates: start: 20120319, end: 20120323
  4. DIFFU K [Concomitant]
     Active Substance: POTASSIUM CHLORIDE
  5. ALEPSAL [Concomitant]
     Active Substance: ATROPA BELLADONNA\CAFFEINE\PHENOBARBITAL

REACTIONS (3)
  - Dehydration [Recovered/Resolved]
  - Toxicity to various agents [Recovered/Resolved]
  - Somnolence [Recovered/Resolved]

NARRATIVE: CASE EVENT DATE: 20120319
